FAERS Safety Report 5956912-0 (Version None)
Quarter: 2008Q4

REPORT INFORMATION
  Report Type: 
  Country: None (occurrence: None)
  Receive Date: 20081118
  Receipt Date: 20081107
  Transmission Date: 20090506
  Serious: Yes (Other)
  Sender: FDA-Public Use
  Company Number: GB-ROCHE-596412

PATIENT
  Age: 31 Year
  Sex: Male
  Weight: 63 kg

DRUGS (4)
  1. ROACCUTANE [Suspect]
     Indication: ACNE
     Route: 048
     Dates: start: 20081001
  2. CIPROFLOXACIN [Concomitant]
  3. ERYTHROMYCIN [Concomitant]
  4. OXYTETRACYCLINE [Concomitant]

REACTIONS (5)
  - ARTHRALGIA [None]
  - ASTHENIA [None]
  - BACK PAIN [None]
  - FATIGUE [None]
  - LEUKOCYTOSIS [None]
